FAERS Safety Report 8546480 (Version 2)
Quarter: 2013Q2

REPORT INFORMATION
  Report Type: Spontaneous
  Country: US (occurrence: None)
  Receive Date: 20120315
  Receipt Date: 20120703
  Transmission Date: 20140414
  Serious: No
  Sender: FDA-Public Use
  Company Number: PHHY2011US23433

PATIENT
  Age: 19 Year
  Sex: Female

DRUGS (2)
  1. GILENYA [Suspect]
     Indication: MULTIPLE SCLEROSIS
     Route: 048
     Dates: start: 20110314
  2. LOESTRIN 1.5/30 21 DAY [Concomitant]

REACTIONS (10)
  - OROPHARYNGEAL PAIN [None]
  - DYSPHONIA [None]
  - DYSPHAGIA [None]
  - Musculoskeletal pain [None]
  - Cold sweat [None]
  - Burning sensation [None]
  - Nausea [None]
  - Abdominal pain [None]
  - Back pain [None]
  - Diarrhoea [None]
